FAERS Safety Report 5932294-5 (Version None)
Quarter: 2008Q4

REPORT INFORMATION
  Report Type: 
  Country: None (occurrence: None)
  Receive Date: 20081028
  Receipt Date: 20081020
  Transmission Date: 20090506
  Serious: Yes (Life-Threatening, Hospitalization)
  Sender: FDA-Public Use
  Company Number: AU-PURDUE-USA_2008_0035535

PATIENT
  Age: 46 Year
  Sex: Female

DRUGS (12)
  1. MORPHINE SULFATE [Suspect]
     Indication: SENSORY DISTURBANCE
     Dosage: 20 MG, DAILY
     Dates: start: 20080715
  2. ALFENTANIL [Suspect]
     Indication: SENSORY DISTURBANCE
     Dosage: 1 MG, SINGLE
     Dates: start: 20080715
  3. ATRACURIUM BESYLATE [Suspect]
     Indication: SENSORY DISTURBANCE
     Dosage: 200 MG, UNK
     Dates: start: 20080715
  4. HAEMACCEL                          /00112901/ [Suspect]
     Indication: SENSORY DISTURBANCE
     Dosage: 750 ML, UNK
     Dates: start: 20080715
  5. MIDAZOLAM HCL [Suspect]
     Indication: SENSORY DISTURBANCE
     Dosage: 2 MG, SINGLE
     Dates: start: 20080715
  6. PROPOFOL [Suspect]
     Indication: SENSORY DISTURBANCE
     Dosage: 150 MG, SINGLE
     Dates: start: 20080715
  7. CEFTRIAXONE [Concomitant]
  8. COVERSYL PLUS [Concomitant]
  9. DIABEX [Concomitant]
  10. LIPITOR [Concomitant]
  11. METOCLOPRAMIDE [Concomitant]
  12. METRONIDAZOLE [Concomitant]

REACTIONS (3)
  - AIRWAY COMPLICATION OF ANAESTHESIA [None]
  - BRONCHOSPASM [None]
  - HYPOTENSION [None]
